FAERS Safety Report 6321351-X (Version None)
Quarter: 2009Q3

REPORT INFORMATION
  Report Type: 
  Country: None (occurrence: None)
  Receive Date: 20090822
  Receipt Date: 20090114
  Transmission Date: 20100115
  Serious: No
  Sender: FDA-Public Use
  Company Number: US-ABBOTT-09P-163-0498169-00

PATIENT
  Sex: Female

DRUGS (16)
  1. NIASPAN [Suspect]
     Indication: DRUG USE FOR UNKNOWN INDICATION
     Dates: start: 20090101
  2. COREG [Concomitant]
     Indication: DRUG USE FOR UNKNOWN INDICATION
  3. ANTIVERT [Concomitant]
     Indication: DRUG USE FOR UNKNOWN INDICATION
  4. CIPRO [Concomitant]
     Indication: DRUG USE FOR UNKNOWN INDICATION
  5. GLUCOPHAGE [Concomitant]
     Indication: DRUG USE FOR UNKNOWN INDICATION
  6. ALDACTONE [Concomitant]
     Indication: DRUG USE FOR UNKNOWN INDICATION
  7. ASPIRIN [Concomitant]
     Indication: DRUG USE FOR UNKNOWN INDICATION
  8. COZAAR [Concomitant]
     Indication: DRUG USE FOR UNKNOWN INDICATION
  9. FLEXERIL [Concomitant]
     Indication: DRUG USE FOR UNKNOWN INDICATION
  10. BUMEX [Concomitant]
     Indication: DRUG USE FOR UNKNOWN INDICATION
  11. ULTRAM [Concomitant]
     Indication: DRUG USE FOR UNKNOWN INDICATION
  12. CRESTOR [Concomitant]
     Indication: DRUG USE FOR UNKNOWN INDICATION
  13. NEXIUM [Concomitant]
     Indication: DRUG USE FOR UNKNOWN INDICATION
  14. PLAVIX [Concomitant]
     Indication: DRUG USE FOR UNKNOWN INDICATION
  15. PREDNISONE [Concomitant]
     Indication: DRUG USE FOR UNKNOWN INDICATION
  16. CELEXA [Concomitant]
     Indication: DRUG USE FOR UNKNOWN INDICATION

REACTIONS (4)
  - DYSPHAGIA [None]
  - FEELING HOT [None]
  - FLUSHING [None]
  - PRURITUS [None]
